FAERS Safety Report 15332716 (Version 3)
Quarter: 2018Q4

REPORT INFORMATION
  Report Type: Report from Study
  Country: None (occurrence: US)
  Receive Date: 20180830
  Receipt Date: 20181023
  Transmission Date: 20190204
  Serious: Yes (Hospitalization)
  Sender: FDA-Public Use
  Company Number: US-ABBVIE-18K-163-2467896-00

PATIENT
  Age: 63 Year
  Sex: Female

DRUGS (10)
  1. PREDNISONE. [Suspect]
     Active Substance: PREDNISONE
     Indication: PRODUCT USED FOR UNKNOWN INDICATION
     Route: 065
  2. MEDROL [Concomitant]
     Active Substance: METHYLPREDNISOLONE
     Indication: PRODUCT USED FOR UNKNOWN INDICATION
  3. LASIX [Concomitant]
     Active Substance: FUROSEMIDE
     Indication: PRODUCT USED FOR UNKNOWN INDICATION
  4. FLONASE [Concomitant]
     Active Substance: FLUTICASONE PROPIONATE
     Indication: SEASONAL ALLERGY
  5. PREDNISONE. [Suspect]
     Active Substance: PREDNISONE
     Route: 065
     Dates: start: 2018
  6. POTASSIUM [Concomitant]
     Active Substance: POTASSIUM
     Indication: PRODUCT USED FOR UNKNOWN INDICATION
  7. RU-TUSS [Concomitant]
     Active Substance: ATROPINE\CHLORPHENIRAMINE\HYOSCYAMINE\PHENYLEPHRINE\PHENYLPROPANOLAMINE\SCOPOLAM
     Indication: PRODUCT USED FOR UNKNOWN INDICATION
  8. SINGULAIR [Concomitant]
     Active Substance: MONTELUKAST SODIUM
     Indication: ASTHMA
  9. HUMIRA [Suspect]
     Active Substance: ADALIMUMAB
     Indication: PSORIATIC ARTHROPATHY
     Route: 058
     Dates: start: 20161228
  10. GABAPENTIN. [Concomitant]
     Active Substance: GABAPENTIN
     Indication: PAIN

REACTIONS (4)
  - Insomnia [Unknown]
  - Seizure [Recovered/Resolved]
  - Memory impairment [Recovering/Resolving]
  - Malaise [Unknown]

NARRATIVE: CASE EVENT DATE: 2018
